FAERS Safety Report 4989645-8 (Version None)
Quarter: 2006Q2

REPORT INFORMATION
  Report Type: 
  Country: None (occurrence: None)
  Receive Date: 20060426
  Receipt Date: 20060413
  Transmission Date: 20061013
  Serious: Yes (Life-Threatening, Hospitalization)
  Sender: FDA-Public Use
  Company Number: US200604001999

PATIENT
  Age: 10 Year
  Sex: Female

DRUGS (1)
  1. STRATTERA [Suspect]
     Indication: ATTENTION DEFICIT/HYPERACTIVITY DISORDER
     Dosage: 10 MG DAILY (1/D)
     Dates: start: 20051001, end: 20060111

REACTIONS (4)
  - CHEST PAIN [None]
  - COARCTATION OF THE AORTA [None]
  - HEADACHE [None]
  - HYPERTENSION [None]
